FAERS Safety Report 5039027-8 (Version None)
Quarter: 2006Q2

REPORT INFORMATION
  Report Type: 
  Country: None (occurrence: None)
  Receive Date: 20060601
  Receipt Date: 20060224
  Transmission Date: 20061013
  Serious: No
  Sender: FDA-Public Use
  Company Number: 2005PV001724

PATIENT
  Age: 74 Year
  Sex: Male
  Weight: 98.8842 kg

DRUGS (17)
  1. BYETTA [Suspect]
     Indication: DIABETES MELLITUS NON-INSULIN-DEPENDENT
     Dosage: SEE IMAGE
     Route: 058
     Dates: start: 20050701, end: 20050101
  2. BYETTA [Suspect]
     Indication: DIABETES MELLITUS NON-INSULIN-DEPENDENT
     Dosage: SEE IMAGE
     Route: 058
     Dates: start: 20050701, end: 20050701
  3. BYETTA [Suspect]
     Indication: DIABETES MELLITUS NON-INSULIN-DEPENDENT
     Dosage: SEE IMAGE
     Route: 058
     Dates: start: 20051125, end: 20051201
  4. BYETTA [Suspect]
     Indication: DIABETES MELLITUS NON-INSULIN-DEPENDENT
     Dosage: SEE IMAGE
     Route: 058
     Dates: start: 20060101
  5. ACTOS [Concomitant]
  6. PRAVACHOL [Concomitant]
  7. ZETIA [Concomitant]
  8. COREG [Concomitant]
  9. COENZYME Q10 [Concomitant]
  10. TEMAZEPAM [Concomitant]
  11. NIACIN [Concomitant]
  12. FOLIC ACID [Concomitant]
  13. NEURONTIN [Concomitant]
  14. DIOVAN [Concomitant]
  15. MULTIVITAMIN [Concomitant]
  16. FISH OIL [Concomitant]
  17. GLUCOSAMINE [Concomitant]

REACTIONS (2)
  - DECREASED APPETITE [None]
  - WEIGHT DECREASED [None]
